FAERS Safety Report 24421770 (Version 1)
Quarter: 2024Q4

REPORT INFORMATION
  Report Type: Spontaneous
  Country: US (occurrence: US)
  Receive Date: 20241010
  Receipt Date: 20241010
  Transmission Date: 20250114
  Serious: Yes (Death, Hospitalization, Other)
  Sender: DR REDDYS
  Company Number: US-DRL-USA-LIT/USA/24/0014785

PATIENT
  Age: 53 Year
  Sex: Male

DRUGS (6)
  1. LENALIDOMIDE [Suspect]
     Active Substance: LENALIDOMIDE
     Indication: Myelodysplastic syndrome
  2. ACYCLOVIR [Suspect]
     Active Substance: ACYCLOVIR
     Indication: Prophylaxis
  3. LUSPATERCEPT [Suspect]
     Active Substance: LUSPATERCEPT
     Indication: Myelodysplastic syndrome
  4. DAPSONE [Concomitant]
     Active Substance: DAPSONE
     Indication: Prophylaxis
  5. ISAVUCONAZONIUM [Concomitant]
     Active Substance: ISAVUCONAZONIUM
     Indication: Pneumonia fungal
  6. MICAFUNGIN [Concomitant]
     Active Substance: MICAFUNGIN SODIUM
     Indication: Pneumonia fungal
     Route: 042

REACTIONS (12)
  - Aspergillus infection [Fatal]
  - Respiratory failure [Fatal]
  - Paralysis [Fatal]
  - Mediastinitis [Fatal]
  - Myelitis [Fatal]
  - Muscular weakness [Unknown]
  - Fall [Unknown]
  - Febrile neutropenia [Unknown]
  - Neutropenia [Unknown]
  - Pancytopenia [Unknown]
  - Respiratory alkalosis [Unknown]
  - Drug ineffective for unapproved indication [Unknown]
